FAERS Safety Report 8274764-3 (Version None)
Quarter: 2012Q2

REPORT INFORMATION
  Report Type: 
  Country: None (occurrence: None)
  Receive Date: 20120411
  Receipt Date: 20120403
  Transmission Date: 20120825
  Serious: Yes (Hospitalization)
  Sender: FDA-Public Use
  Company Number: HU-ELI_LILLY_AND_COMPANY-HU201010003598

PATIENT
  Sex: Male
  Weight: 75.5 kg

DRUGS (8)
  1. VENTOLIN                                /SCH/ [Concomitant]
  2. PEMETREXED [Suspect]
     Indication: NON-SMALL CELL LUNG CANCER
     Dosage: 950 MG, UNK
     Dates: start: 20100922, end: 20100922
  3. CISPLATIN [Suspect]
     Indication: NON-SMALL CELL LUNG CANCER
     Dosage: 143 MG, UNK
     Dates: start: 20100922, end: 20100922
  4. SPIRIVA [Concomitant]
  5. EMETRON [Concomitant]
  6. TRAMADOL HCL [Concomitant]
  7. FOLSAURE [Concomitant]
  8. BISOPROLOL FUMARATE [Concomitant]

REACTIONS (2)
  - ANAEMIA [None]
  - PERICARDIAL EFFUSION [None]
